FAERS Safety Report 7554602-4 (Version None)
Quarter: 2011Q2

REPORT INFORMATION
  Report Type: 
  Country: None (occurrence: None)
  Receive Date: 20110617
  Receipt Date: 20110607
  Transmission Date: 20111010
  Serious: Yes (Life-Threatening, Hospitalization, Other)
  Sender: FDA-Public Use
  Company Number: US-ROCHE-782671

PATIENT
  Sex: Female

DRUGS (3)
  1. CISPLATIN [Suspect]
     Dosage: ON DAY 1.
     Route: 042
     Dates: start: 20090929
  2. BEVACIZUMAB [Suspect]
     Dosage: OVER 30-90 MINUTES ON DAY 1 OF CYCLE. (ONE CYCLE: 21 DAYS)
     Route: 042
     Dates: start: 20090929
  3. PACLITAXEL [Suspect]
     Dosage: OVER 3 HOURS ON DAY 1
     Route: 042
     Dates: start: 20090929

REACTIONS (4)
  - NERVOUS SYSTEM DISORDER [None]
  - CONFUSIONAL STATE [None]
  - CONVULSION [None]
  - HAEMORRHAGE INTRACRANIAL [None]
